FAERS Safety Report 25253148 (Version 1)
Quarter: 2025Q2

REPORT INFORMATION
  Report Type: Spontaneous
  Country: FR (occurrence: FR)
  Receive Date: 20250430
  Receipt Date: 20250430
  Transmission Date: 20250717
  Serious: Yes (Hospitalization)
  Sender: JOHNSON AND JOHNSON
  Company Number: None

PATIENT
  Age: 4 Month
  Sex: Male
  Weight: 4.6 kg

DRUGS (1)
  1. XARELTO [Suspect]
     Active Substance: RIVAROXABAN
     Indication: Dilated cardiomyopathy
     Dosage: 1.4 MG, Q8HR
     Route: 048
     Dates: start: 20250131, end: 20250217

REACTIONS (3)
  - Cardiac ventricular thrombosis [Recovering/Resolving]
  - Drug ineffective [Recovering/Resolving]
  - Product preparation error [Recovering/Resolving]

NARRATIVE: CASE EVENT DATE: 20250209
